FAERS Safety Report 8268673-3 (Version None)
Quarter: 2012Q2

REPORT INFORMATION
  Report Type: 
  Country: None (occurrence: None)
  Receive Date: 20120409
  Receipt Date: 20120330
  Transmission Date: 20120825
  Serious: No
  Sender: FDA-Public Use
  Company Number: US-PFIZER INC-2012083757

PATIENT
  Sex: Female
  Weight: 53.968 kg

DRUGS (11)
  1. METOPROLOL [Concomitant]
     Dosage: 50 MG, 2X/DAY
  2. IRON [Concomitant]
     Dosage: 325 MG, 3X/DAY
  3. GLYBURIDE AND METFORMIN HYDROCHLORIDE [Concomitant]
     Dosage: GLYBURIDE UNK/METFORMIN 500MG (TWO TAB TWICE A DAY)
  4. JANUVIA [Concomitant]
     Dosage: 50 MG, DAILY (100MG A HALF A TAB DAILY)
  5. ZOLPIDEM TARTRATE [Concomitant]
     Dosage: 10 MG AT BEDTIME
  6. SUTENT [Suspect]
     Indication: RENAL CELL CARCINOMA
     Dosage: 50 MG, UNK
     Dates: start: 20120328
  7. PAXIL [Concomitant]
     Dosage: 10 MG, AT BEDTIME
  8. IBUPROFEN (ADVIL) [Concomitant]
     Indication: HEADACHE
     Dosage: UNK, AS NEEDED
  9. BENAZEPRIL [Concomitant]
     Dosage: 80 MG DAILY (40 MG 2 TABS DAILY)
  10. CYMBALTA [Concomitant]
     Dosage: 30 MG, DAILY
  11. ACTOS [Concomitant]
     Dosage: 30 MG, DAILY

REACTIONS (2)
  - ASTHENIA [None]
  - HEADACHE [None]
